FAERS Safety Report 10950016 (Version 1)
Quarter: 2015Q1

REPORT INFORMATION
  Report Type: Report from Study
  Country: US (occurrence: US)
  Receive Date: 20150324
  Receipt Date: 20150324
  Transmission Date: 20150721
  Serious: Yes (Hospitalization)
  Sender: FDA-Public Use
  Company Number: US-EXELIXIS-CABO-14004993

PATIENT
  Age: 71 Year
  Sex: Male

DRUGS (11)
  1. LORATADINE. [Concomitant]
     Active Substance: LORATADINE
  2. CALCIUM [Concomitant]
     Active Substance: CALCIUM
  3. ASPIRIN. [Concomitant]
     Active Substance: ASPIRIN
  4. TAMSULOSIN [Concomitant]
     Active Substance: TAMSULOSIN
  5. CABOZANTINIB [Suspect]
     Active Substance: CABOZANTINIB
     Indication: THYROID CANCER
     Dosage: 60 MG, QD
     Route: 048
     Dates: start: 20141014, end: 20141205
  6. LIPITOR [Concomitant]
     Active Substance: ATORVASTATIN CALCIUM
  7. MULTIVITAMIN [Concomitant]
     Active Substance: VITAMINS
  8. METHYLPREDNISOLONE. [Concomitant]
     Active Substance: METHYLPREDNISOLONE
  9. COLACE [Concomitant]
     Active Substance: DOCUSATE SODIUM
  10. SYNTHROID [Concomitant]
     Active Substance: LEVOTHYROXINE SODIUM
  11. LISINOPRIL. [Concomitant]
     Active Substance: LISINOPRIL

REACTIONS (5)
  - Tumour pain [Unknown]
  - Inflammation [Unknown]
  - Skin exfoliation [Unknown]
  - Glossodynia [Unknown]
  - Drug ineffective [Unknown]

NARRATIVE: CASE EVENT DATE: 20141204
